FAERS Safety Report 4572435-8 (Version None)
Quarter: 2005Q1

REPORT INFORMATION
  Report Type: 
  Country: None (occurrence: None)
  Receive Date: 20050207
  Receipt Date: 20050127
  Transmission Date: 20050727
  Serious: Yes (Other)
  Sender: FDA-Public Use
  Company Number: AT-GLAXOSMITHKLINE-B0369886A

PATIENT

DRUGS (1)
  1. AUGMENTIN '125' [Suspect]

REACTIONS (2)
  - COLITIS [None]
  - DRUG EXPOSURE VIA BREAST MILK [None]
